FAERS Safety Report 10765352 (Version 1)
Quarter: 2015Q1

REPORT INFORMATION
  Report Type: Spontaneous
  Country: IT (occurrence: IT)
  Receive Date: 20150205
  Receipt Date: 20150205
  Transmission Date: 20150721
  Serious: Yes (Hospitalization)
  Sender: FDA-Public Use
  Company Number: IT-ASTRAZENECA-2015SE07581

PATIENT
  Age: 22353 Day
  Sex: Male
  Weight: 75 kg

DRUGS (1)
  1. BRILIQUE [Suspect]
     Active Substance: TICAGRELOR
     Indication: THROMBOSIS PROPHYLAXIS
     Route: 048
     Dates: start: 20150120, end: 20150120

REACTIONS (4)
  - Lymphadenitis [Recovering/Resolving]
  - Skin induration [Unknown]
  - Lymphadenopathy [Recovering/Resolving]
  - Salivary gland enlargement [Unknown]

NARRATIVE: CASE EVENT DATE: 20150121
